FAERS Safety Report 15166366 (Version 1)
Quarter: 2018Q3

REPORT INFORMATION
  Report Type: Spontaneous
  Country: US (occurrence: US)
  Receive Date: 20180719
  Receipt Date: 20180719
  Transmission Date: 20181010
  Serious: No
  Sender: FDA-Public Use
  Company Number: US-OTSUKA-2018_012847

PATIENT
  Sex: Female

DRUGS (2)
  1. REXULTI [Suspect]
     Active Substance: BREXPIPRAZOLE
     Dosage: 1 MG, UNK
     Route: 065
  2. REXULTI [Suspect]
     Active Substance: BREXPIPRAZOLE
     Indication: DEPRESSION
     Dosage: 3 MG, QD
     Route: 048

REACTIONS (10)
  - Hypersomnia [Not Recovered/Not Resolved]
  - Drug dose omission [Unknown]
  - Social avoidant behaviour [Not Recovered/Not Resolved]
  - Weight increased [Unknown]
  - Restlessness [Not Recovered/Not Resolved]
  - Incorrect dose administered [Unknown]
  - Mood altered [Unknown]
  - Asthenia [Not Recovered/Not Resolved]
  - Feeling abnormal [Not Recovered/Not Resolved]
  - Nasal congestion [Not Recovered/Not Resolved]
